FAERS Safety Report 20166795 (Version 4)
Quarter: 2022Q3

REPORT INFORMATION
  Report Type: Spontaneous
  Country: CA (occurrence: CA)
  Receive Date: 20211209
  Receipt Date: 20220729
  Transmission Date: 20221027
  Serious: Yes (Other)
  Sender: FDA-Public Use
  Company Number: CA-PFIZER INC-202101711457

PATIENT
  Age: 61 Year
  Sex: Male

DRUGS (7)
  1. XELJANZ [Suspect]
     Active Substance: TOFACITINIB CITRATE
     Indication: Rheumatoid arthritis
     Dosage: 5 MG, 2X/DAY
     Route: 048
     Dates: start: 20181122, end: 201901
  2. XELJANZ [Suspect]
     Active Substance: TOFACITINIB CITRATE
     Dosage: 5 MG, 2X/DAY
     Route: 048
     Dates: start: 20190912, end: 20191025
  3. XELJANZ [Suspect]
     Active Substance: TOFACITINIB CITRATE
     Dosage: 5 MG, 2X/DAY
     Route: 048
     Dates: start: 2019, end: 202005
  4. XELJANZ [Suspect]
     Active Substance: TOFACITINIB CITRATE
     Dosage: 5 MG/KG, 2X/DAY
     Route: 048
  5. VITAMIN B12 [Concomitant]
     Active Substance: CYANOCOBALAMIN
  6. METHOTREXATE [Concomitant]
     Active Substance: METHOTREXATE
     Dosage: 20 MG
     Route: 048
     Dates: start: 2015
  7. METHOTREXATE [Concomitant]
     Active Substance: METHOTREXATE
     Dosage: 25 MG
     Route: 065
     Dates: start: 2019

REACTIONS (13)
  - Neoplasm prostate [Recovering/Resolving]
  - Malignant hypertension [Unknown]
  - Drug ineffective [Unknown]
  - Bone lesion [Unknown]
  - Fibromyalgia [Unknown]
  - Arthralgia [Not Recovered/Not Resolved]
  - Joint stiffness [Unknown]
  - Synovitis [Not Recovered/Not Resolved]
  - Nodule [Unknown]
  - Fatigue [Not Recovered/Not Resolved]
  - Joint swelling [Unknown]
  - Oedema peripheral [Not Recovered/Not Resolved]
  - C-reactive protein decreased [Not Recovered/Not Resolved]

NARRATIVE: CASE EVENT DATE: 20200101
